FAERS Safety Report 7328744-2 (Version None)
Quarter: 2011Q1

REPORT INFORMATION
  Report Type: 
  Country: None (occurrence: None)
  Receive Date: 20110303
  Receipt Date: 20110218
  Transmission Date: 20110831
  Serious: Yes (Hospitalization, Other)
  Sender: FDA-Public Use
  Company Number: PHHY2010CA10043

PATIENT
  Sex: Male

DRUGS (3)
  1. SANDOSTATIN LAR [Suspect]
     Dosage: 30 MG EVERY 4 WEEKS
     Route: 030
  2. SANDOSTATIN LAR [Suspect]
     Indication: ACROMEGALY
     Dosage: 20 MG EVERY FOUR WEEKS
     Route: 030
     Dates: start: 20100115
  3. SANDOSTATIN LAR [Suspect]
     Dosage: 30 MG, QMO
     Route: 030

REACTIONS (15)
  - NEPHROLITHIASIS [None]
  - BLOOD PRESSURE SYSTOLIC INCREASED [None]
  - DIARRHOEA [None]
  - ANXIETY [None]
  - ASTHENIA [None]
  - LACTOSE INTOLERANCE [None]
  - ALOPECIA [None]
  - BLOOD GROWTH HORMONE ABNORMAL [None]
  - SINUS DISORDER [None]
  - GASTROENTERITIS [None]
  - SUBILEUS [None]
  - GROIN PAIN [None]
  - NAUSEA [None]
  - DIVERTICULITIS [None]
  - WEIGHT DECREASED [None]
